FAERS Safety Report 8237653-6 (Version None)
Quarter: 2012Q1

REPORT INFORMATION
  Report Type: 
  Country: None (occurrence: None)
  Receive Date: 20120309
  Receipt Date: 20110104
  Transmission Date: 20120608
  Serious: Yes (Hospitalization)
  Sender: FDA-Public Use
  Company Number: PHHY2010US84878

PATIENT
  Age: 36 Year
  Sex: Female

DRUGS (2)
  1. TYLENOL PM (DIPHENHYDRAMINE, PARACETAMOL) [Concomitant]
  2. EXTAVIA [Suspect]
     Indication: MULTIPLE SCLEROSIS
     Dosage: 0.125 MG, QOD, SUBCUTANEOUS
     Route: 058
     Dates: start: 20101010

REACTIONS (6)
  - WALKING AID USER [None]
  - FATIGUE [None]
  - BACK PAIN [None]
  - SPEECH DISORDER [None]
  - MULTIPLE SCLEROSIS RELAPSE [None]
  - PARAPLEGIA [None]
